FAERS Safety Report 9165604 (Version 2)
Quarter: 2013Q1

REPORT INFORMATION
  Report Type: Spontaneous
  Country: FR (occurrence: None)
  Receive Date: 20130301
  Receipt Date: 20130328
  Transmission Date: 20140127
  Serious: Yes (Congenital Anomaly)
  Sender: FDA-Public Use
  Company Number: 220578

PATIENT
  Sex: Female

DRUGS (3)
  1. INNOHEP (TINZAPARIN SODIUM) [Suspect]
     Indication: PROTEIN S DEFICIENCY
     Route: 064
     Dates: start: 20120812, end: 20121111
  2. PREVISCAN (FLUINDIONE) [Suspect]
     Indication: PROTEIN S DEFICIENCY
     Route: 064
     Dates: end: 20120326
  3. LOVENOX (ENOXAPARIN SODIUM)(10000 IU/ML) [Suspect]
     Indication: PROTEIN S DEFICIENCY
     Dosage: 2 DF (0.6 ML, 2 IN 1D)
     Route: 064
     Dates: start: 20120326, end: 20120812

REACTIONS (5)
  - Maternal drugs affecting foetus [None]
  - Congenital cystic lung [None]
  - Off label use [None]
  - Incorrect route of drug administration [None]
  - Incorrect drug administration duration [None]
